FAERS Safety Report 15401685 (Version 5)
Quarter: 2020Q3

REPORT INFORMATION
  Report Type: Spontaneous
  Country: US (occurrence: US)
  Receive Date: 20180919
  Receipt Date: 20200825
  Transmission Date: 20201102
  Serious: Yes (Other)
  Sender: FDA-Public Use
  Company Number: US-PFIZER INC-2018374935

PATIENT
  Age: 66 Year
  Sex: Female

DRUGS (1)
  1. XELJANZ XR [Suspect]
     Active Substance: TOFACITINIB CITRATE
     Dosage: 11 MG
     Dates: start: 201606

REACTIONS (8)
  - Pneumonia [Unknown]
  - Meniere^s disease [Unknown]
  - Cough [Unknown]
  - Bronchitis [Unknown]
  - Respiratory tract infection [Unknown]
  - Immune system disorder [Unknown]
  - Upper respiratory tract infection [Unknown]
  - Vitamin D deficiency [Unknown]
